FAERS Safety Report 21622843 (Version 1)
Quarter: 2022Q4

REPORT INFORMATION
  Report Type: Spontaneous
  Country: US (occurrence: None)
  Receive Date: 20221118
  Receipt Date: 20221118
  Transmission Date: 20230113
  Serious: No
  Sender: FDA-Public Use
  Company Number: None

PATIENT
  Age: 50 Year
  Sex: Female

DRUGS (1)
  1. VENOFER [Suspect]
     Active Substance: IRON SUCROSE

REACTIONS (9)
  - Paraesthesia oral [None]
  - Paraesthesia oral [None]
  - Hypoaesthesia oral [None]
  - Hypoaesthesia oral [None]
  - Flushing [None]
  - Blood pressure systolic increased [None]
  - Respiratory rate increased [None]
  - Back pain [None]
  - Infusion related reaction [None]

NARRATIVE: CASE EVENT DATE: 20221019
